FAERS Safety Report 8937248 (Version 7)
Quarter: 2013Q4

REPORT INFORMATION
  Report Type: Spontaneous
  Country: JP (occurrence: JP)
  Receive Date: 20121203
  Receipt Date: 20131113
  Transmission Date: 20140711
  Serious: Yes (Other)
  Sender: FDA-Public Use
  Company Number: PHHY2012JP109183

PATIENT
  Sex: Female

DRUGS (4)
  1. CLOZAPINE [Suspect]
     Indication: SCHIZOPHRENIA
     Dosage: 12.5 MG, UNK
     Route: 048
     Dates: start: 20120417
  2. CLOZAPINE [Suspect]
     Dosage: 225 MG, UNK
     Route: 048
  3. CLOZAPINE [Suspect]
     Dosage: 200 MG, UNK
  4. CLOZAPINE [Suspect]
     Dosage: 350 MG, UNK
     Route: 048

REACTIONS (3)
  - Cognitive disorder [Recovering/Resolving]
  - Electroencephalogram abnormal [Recovering/Resolving]
  - Amnesia [Unknown]
